FAERS Safety Report 21802975 (Version 1)
Quarter: 2022Q4

REPORT INFORMATION
  Report Type: Report from Study
  Country: US (occurrence: US)
  Receive Date: 20221231
  Receipt Date: 20221231
  Transmission Date: 20230113
  Serious: No
  Sender: FDA-Public Use
  Company Number: US-ACORDA-ACO_173913_2022

PATIENT
  Age: 77 Year
  Sex: Male

DRUGS (1)
  1. INBRIJA [Suspect]
     Active Substance: LEVODOPA
     Indication: Parkinson^s disease
     Dosage: 42 MILLIGRAM
     Route: 065
     Dates: start: 20221103

REACTIONS (6)
  - Eye irritation [Recovered/Resolved]
  - Drug intolerance [Recovered/Resolved]
  - Nasal discomfort [Recovered/Resolved]
  - Choking sensation [Recovered/Resolved]
  - Cough [Recovered/Resolved]
  - Nasal discharge discolouration [Recovered/Resolved]

NARRATIVE: CASE EVENT DATE: 20221103
